FAERS Safety Report 10678857 (Version 3)
Quarter: 2015Q1

REPORT INFORMATION
  Report Type: Spontaneous
  Country: US (occurrence: US)
  Receive Date: 20141229
  Receipt Date: 20150223
  Transmission Date: 20150720
  Serious: No
  Sender: FDA-Public Use
  Company Number: US-PFIZER INC-2014355585

PATIENT
  Age: 66 Year
  Sex: Male
  Weight: 82 kg

DRUGS (2)
  1. TYLENOL SINUS [Concomitant]
     Active Substance: ACETAMINOPHEN\DIPHENHYDRAMINE
     Dosage: UNK
     Dates: start: 20141220
  2. VIAGRA [Suspect]
     Active Substance: SILDENAFIL CITRATE
     Indication: PROSTATECTOMY
     Dosage: 100 MG, AS NEEDED
     Dates: start: 20110320

REACTIONS (2)
  - Sinusitis [Recovered/Resolved]
  - Laryngitis [Recovered/Resolved]

NARRATIVE: CASE EVENT DATE: 20141226
